FAERS Safety Report 5522922-0 (Version None)
Quarter: 2007Q4

REPORT INFORMATION
  Report Type: 
  Country: None (occurrence: None)
  Receive Date: 20071116
  Receipt Date: 20071031
  Transmission Date: 20080405
  Serious: Yes (Hospitalization, Other)
  Sender: FDA-Public Use
  Company Number: 2007AP001247

PATIENT
  Age: 40 Year
  Sex: Male

DRUGS (6)
  1. CEFTRIAXONE [Suspect]
     Indication: MENINGITIS
     Dosage: 2 GM;Q12H; IV; 1 GM;Q12H;IV
     Route: 042
  2. CEFTRIAXONE [Suspect]
     Indication: MENINGITIS
     Dosage: 2 GM;Q12H; IV; 1 GM;Q12H;IV
     Route: 042
  3. VANCOMYCIN [Suspect]
     Indication: MENINGITIS
     Dosage: 1 GM;Q12H;IV
     Route: 042
  4. ACYCLOVIR [Concomitant]
  5. PHENYTOIN [Concomitant]
  6. LEVETIRACETAM [Concomitant]

REACTIONS (2)
  - ACUTE GENERALISED EXANTHEMATOUS PUSTULOSIS [None]
  - NEPHRITIS INTERSTITIAL [None]
